FAERS Safety Report 4394950-2 (Version None)
Quarter: 2004Q3

REPORT INFORMATION
  Report Type: 
  Country: None (occurrence: None)
  Receive Date: 20040712
  Receipt Date: 20040628
  Transmission Date: 20050211
  Serious: Yes (Other)
  Sender: FDA-Public Use
  Company Number: NO-GLAXOSMITHKLINE-B0337744A

PATIENT
  Age: 37 Year
  Sex: Female

DRUGS (1)
  1. ZYBAN [Suspect]

REACTIONS (5)
  - CRYING [None]
  - DEPRESSED MOOD [None]
  - EXCITABILITY [None]
  - IRRITABILITY [None]
  - PSYCHOTIC DISORDER [None]
